FAERS Safety Report 6292446-4 (Version None)
Quarter: 2009Q3

REPORT INFORMATION
  Report Type: 
  Country: None (occurrence: None)
  Receive Date: 20090731
  Receipt Date: 20090720
  Transmission Date: 20100115
  Serious: Yes (Other)
  Sender: FDA-Public Use
  Company Number: DK-NOVOPROD-289537

PATIENT
  Sex: Male
  Weight: 4 kg

DRUGS (4)
  1. LEVEMIR [Suspect]
     Indication: DRUG EXPOSURE DURING PREGNANCY
     Route: 064
  2. NOVORAPID [Suspect]
     Indication: DRUG EXPOSURE DURING PREGNANCY
     Route: 064
  3. VENTOLIN [Concomitant]
     Indication: DRUG EXPOSURE DURING PREGNANCY
     Route: 064
  4. ELTROXIN [Concomitant]
     Indication: DRUG EXPOSURE DURING PREGNANCY
     Route: 064

REACTIONS (1)
  - PYELOCALIECTASIS [None]
